FAERS Safety Report 10231310 (Version 3)
Quarter: 2014Q4

REPORT INFORMATION
  Report Type: Spontaneous
  Country: JP (occurrence: JP)
  Receive Date: 20140611
  Receipt Date: 20141211
  Transmission Date: 20150528
  Serious: Yes (Life-Threatening, Hospitalization, Other)
  Sender: FDA-Public Use
  Company Number: JP-GLAXOSMITHKLINE-B1001885A

PATIENT
  Age: 56 Year
  Sex: Male

DRUGS (2)
  1. CRESTOR [Concomitant]
     Active Substance: ROSUVASTATIN CALCIUM
     Indication: HYPERCHOLESTEROLAEMIA
     Route: 048
  2. PAZOPANIB [Suspect]
     Active Substance: PAZOPANIB
     Indication: MYXOID LIPOSARCOMA
     Route: 048
     Dates: start: 20140507, end: 20140515

REACTIONS (6)
  - Lung disorder [Unknown]
  - Chills [Recovering/Resolving]
  - Computerised tomogram thorax abnormal [Unknown]
  - Pyrexia [Recovering/Resolving]
  - Cell marker increased [Unknown]
  - Interstitial lung disease [Recovered/Resolved]

NARRATIVE: CASE EVENT DATE: 20140514
